APPROVED DRUG PRODUCT: TECHNETIUM TC 99M SESTAMIBI
Active Ingredient: TECHNETIUM TC-99M SESTAMIBI KIT
Strength: N/A
Dosage Form/Route: INJECTABLE;INJECTION
Application: A078806 | Product #001 | TE Code: AP
Applicant: JUBILANT DRAXIMAGE USA INC
Approved: Apr 29, 2009 | RLD: No | RS: No | Type: RX